FAERS Safety Report 7378456-4 (Version None)
Quarter: 2011Q1

REPORT INFORMATION
  Report Type: 
  Country: None (occurrence: None)
  Receive Date: 20110328
  Receipt Date: 20110317
  Transmission Date: 20110831
  Serious: Yes (Hospitalization)
  Sender: FDA-Public Use
  Company Number: US-ELI_LILLY_AND_COMPANY-US200908005330

PATIENT
  Sex: Male
  Weight: 175.51 kg

DRUGS (8)
  1. NOVOLOG [Concomitant]
     Indication: TYPE 2 DIABETES MELLITUS
     Dosage: UNK
     Route: 058
  2. GLYBURIDE [Concomitant]
  3. BYETTA [Suspect]
     Dosage: 10 UG, 2/D
     Route: 058
  4. BYETTA [Suspect]
     Indication: TYPE 2 DIABETES MELLITUS
     Dosage: 5 UG, 2/D
     Route: 058
  5. LEVEMIR [Concomitant]
     Indication: TYPE 2 DIABETES MELLITUS
     Dosage: 10 U, EACH EVENING
     Route: 058
     Dates: start: 20110301
  6. METFORMIN [Concomitant]
     Dosage: 500 MG, EACH EVENING
     Route: 048
  7. BYETTA [Suspect]
     Dosage: 10 UG, 2/D
     Route: 058
  8. METFORMIN [Concomitant]
     Indication: TYPE 2 DIABETES MELLITUS
     Dosage: 1000 MG, EACH MORNING
     Route: 048

REACTIONS (7)
  - CYSTITIS [None]
  - BLOOD GLUCOSE INCREASED [None]
  - DEHYDRATION [None]
  - SINUSITIS [None]
  - DYSURIA [None]
  - PYREXIA [None]
  - DRUG INEFFECTIVE [None]
